FAERS Safety Report 9120316 (Version 6)
Quarter: 2013Q3

REPORT INFORMATION
  Report Type: Report from Study
  Country: FR (occurrence: FR)
  Receive Date: 20130226
  Receipt Date: 20130702
  Transmission Date: 20140515
  Serious: Yes (Other)
  Sender: FDA-Public Use
  Company Number: FR-PFIZER INC-2013063532

PATIENT
  Age: 65 Year
  Sex: Female
  Weight: 63 kg

DRUGS (9)
  1. SOMAVERT [Suspect]
     Indication: ACROMEGALY
     Dosage: 20 MG, 1X/DAY
     Route: 058
     Dates: start: 20090528, end: 20110803
  2. SOMAVERT [Suspect]
     Dosage: 30 MG, 1X/DAY
     Route: 058
     Dates: start: 20110804
  3. LEVOTHYROX [Concomitant]
     Indication: HYPOTHYROIDISM
     Dosage: 125 UG, 1X/DAY
     Route: 048
     Dates: start: 200406
  4. EZETROL [Concomitant]
     Indication: HYPERCHOLESTEROLAEMIA
     Dosage: 10 MG, 1X/DAY
     Route: 048
     Dates: start: 20120112
  5. EXEMESTANE [Concomitant]
     Indication: BREAST CANCER
     Dosage: UNK, 1X/DAY
     Route: 048
  6. HERCEPTIN [Concomitant]
     Dosage: UNK
     Route: 042
     Dates: start: 20110621
  7. UVEDOSE [Concomitant]
     Dosage: UNK
     Route: 048
     Dates: start: 20100510
  8. CARTEOL [Concomitant]
     Dosage: UNK
     Dates: start: 20091118
  9. TRAVATAN [Concomitant]
     Dosage: UNK
     Dates: start: 20091118

REACTIONS (2)
  - Neoplasm progression [Not Recovered/Not Resolved]
  - Pituitary tumour benign [Not Recovered/Not Resolved]
